FAERS Safety Report 7554004-0 (Version None)
Quarter: 2011Q2

REPORT INFORMATION
  Report Type: 
  Country: None (occurrence: None)
  Receive Date: 20110617
  Receipt Date: 20110607
  Transmission Date: 20111010
  Serious: Yes (Death)
  Sender: FDA-Public Use
  Company Number: GB-CELGENEUS-167-50794-11061251

PATIENT

DRUGS (1)
  1. VIDAZA [Suspect]
     Dosage: 75 MILLIGRAM/SQ. METER
     Route: 050

REACTIONS (3)
  - ACUTE MYELOID LEUKAEMIA [None]
  - SEPSIS [None]
  - DISEASE PROGRESSION [None]
